FAERS Safety Report 19498666 (Version 1)
Quarter: 2021Q3

REPORT INFORMATION
  Report Type: Spontaneous
  Country: US (occurrence: US)
  Receive Date: 20210706
  Receipt Date: 20210706
  Transmission Date: 20211014
  Serious: Yes (Death, Hospitalization, Other)
  Sender: FDA-Public Use
  Company Number: US-ALLERGAN-2124549US

PATIENT
  Sex: Male
  Weight: 72.65 kg

DRUGS (5)
  1. VIBERZI [Suspect]
     Active Substance: ELUXADOLINE
     Indication: IRRITABLE BOWEL SYNDROME
     Dosage: 75 MG, QD
     Dates: start: 20161220
  2. STEROIDS [Concomitant]
     Active Substance: UNSPECIFIED INGREDIENT
     Indication: CHRONIC OBSTRUCTIVE PULMONARY DISEASE
     Route: 048
  3. DUONEB [Concomitant]
     Active Substance: ALBUTEROL SULFATE\IPRATROPIUM BROMIDE
     Indication: CHRONIC OBSTRUCTIVE PULMONARY DISEASE
  4. PNEUMOVAX 23 [Concomitant]
     Active Substance: PNEUMOCOCCAL VACCINE, POLYVALENT 23
     Indication: CHRONIC OBSTRUCTIVE PULMONARY DISEASE
  5. ZITHROMAX [Concomitant]
     Active Substance: AZITHROMYCIN DIHYDRATE
     Indication: CHRONIC OBSTRUCTIVE PULMONARY DISEASE

REACTIONS (35)
  - Death [Fatal]
  - Ileus [Recovered/Resolved]
  - Pulmonary hypertension [Recovered/Resolved]
  - Abdominal wall wound [Not Recovered/Not Resolved]
  - Postoperative wound infection [Recovered/Resolved]
  - Pyelonephritis acute [Recovered/Resolved]
  - Post procedural sepsis [Recovered/Resolved]
  - Acute kidney injury [Recovered/Resolved]
  - Fluid overload [Recovered/Resolved]
  - Hyperkalaemia [Not Recovered/Not Resolved]
  - Hypokalaemia [Recovered/Resolved]
  - Vitamin D decreased [Not Recovered/Not Resolved]
  - Malnutrition [Not Recovered/Not Resolved]
  - Constipation [Unknown]
  - Abdominal hernia [Unknown]
  - Postoperative respiratory failure [Recovered/Resolved]
  - Cervical spinal stenosis [Not Recovered/Not Resolved]
  - Physical deconditioning [Not Recovered/Not Resolved]
  - Hypoventilation [Unknown]
  - Metabolic acidosis [Recovered/Resolved]
  - Ascites [Recovered/Resolved]
  - Tachypnoea [Recovered/Resolved]
  - Hepatic enzyme increased [Unknown]
  - Sphincter of Oddi dysfunction [Unknown]
  - Pancreatitis [Unknown]
  - Azotaemia [Not Recovered/Not Resolved]
  - Respiratory moniliasis [Recovered/Resolved]
  - Metabolic encephalopathy [Recovered/Resolved]
  - Dehydration [Recovered/Resolved]
  - Acute left ventricular failure [Not Recovered/Not Resolved]
  - Lipase increased [Unknown]
  - Pneumonia [Recovered/Resolved]
  - Myelopathy [Not Recovered/Not Resolved]
  - Small intestinal obstruction [Recovered/Resolved]
  - Contraindicated product administered [Unknown]

NARRATIVE: CASE EVENT DATE: 20161220
